FAERS Safety Report 9000861 (Version 1)
Quarter: 2012Q4

REPORT INFORMATION
  Report Type: Spontaneous
  Country: GR (occurrence: None)
  Receive Date: 20121226
  Receipt Date: 20121226
  Transmission Date: 20130627
  Serious: Yes (Life-Threatening)
  Sender: FDA-Public Use
  Company Number: GR-010442

PATIENT
  Age: 56 Year
  Sex: Male
  Weight: 80 kg

DRUGS (6)
  1. DEGARELIX [Suspect]
     Indication: PROSTATE CANCER METASTATIC
     Dosage: 120 mg stating (loading) dose: Administered as tow separate injections of 120mg each subcutaneous)
     Route: 058
     Dates: start: 20120409, end: 20120409
  2. DEGARELIX [Suspect]
     Indication: PROSTATE CANCER METASTATIC
     Dosage: 120 mg, administered as two separate injections of 120mg each. Subcutaneous
     Route: 058
     Dates: start: 20120417
  3. ETOPOSIDE [Concomitant]
  4. CISPLATIN [Concomitant]
  5. FENISTIL [Concomitant]
  6. ONDANSETRON [Concomitant]

REACTIONS (1)
  - Peripheral embolism [None]
